FAERS Safety Report 7267658-3 (Version None)
Quarter: 2011Q1

REPORT INFORMATION
  Report Type: 
  Country: None (occurrence: None)
  Receive Date: 20110201
  Receipt Date: 20110127
  Transmission Date: 20110831
  Serious: Yes (Hospitalization)
  Sender: FDA-Public Use
  Company Number: US-ROCHE-719516

PATIENT
  Sex: Female

DRUGS (2)
  1. RIBAVIRIN [Suspect]
     Indication: HEPATITIS C
     Dosage: MISSED 2 DOSES; PATIENT IN WEEK 23 OF TREATMENT
     Route: 065
     Dates: start: 20100711
  2. PEGINTERFERON ALFA-2A [Suspect]
     Indication: HEPATITIS C
     Dosage: PRE-FILLED SYRINGE, PATIENT COMPLETED WEEK 23 OF TREATMENT
     Route: 065
     Dates: start: 20100711, end: 20101116

REACTIONS (22)
  - FEELING ABNORMAL [None]
  - GALLBLADDER DISORDER [None]
  - PYREXIA [None]
  - ASTHENIA [None]
  - MALAISE [None]
  - GASTROOESOPHAGEAL REFLUX DISEASE [None]
  - TOOTHACHE [None]
  - MIGRAINE [None]
  - AMNESIA [None]
  - INFLUENZA [None]
  - WEIGHT DECREASED [None]
  - NAUSEA [None]
  - VOMITING [None]
  - ANXIETY [None]
  - INCREASED TENDENCY TO BRUISE [None]
  - INCORRECT DOSE ADMINISTERED [None]
  - DEPRESSION [None]
  - ABDOMINAL PAIN [None]
  - FATIGUE [None]
  - DECREASED APPETITE [None]
  - PAIN [None]
  - TOOTH ABSCESS [None]
